FAERS Safety Report 10137162 (Version 1)
Quarter: 2014Q2

REPORT INFORMATION
  Report Type: Report from Study
  Country: US (occurrence: US)
  Receive Date: 20140429
  Receipt Date: 20140429
  Transmission Date: 20141212
  Serious: No
  Sender: FDA-Public Use
  Company Number: US-ABBVIE-14P-163-1214737-00

PATIENT
  Age: 56 Year
  Sex: Male
  Weight: 80.81 kg

DRUGS (9)
  1. ANDROGEL [Suspect]
     Indication: BLOOD TESTOSTERONE DECREASED
     Dosage: 2 PUMPS
     Route: 061
     Dates: start: 201305
  2. NEURONTIN [Concomitant]
     Indication: NEUROPATHY PERIPHERAL
  3. CITALOPRAM [Concomitant]
     Indication: DEPRESSION
  4. CLONOPIN [Concomitant]
     Indication: ANXIETY
  5. DURAGESIC [Concomitant]
     Indication: PAIN
     Dosage: PATCH
  6. OXYCODONE [Concomitant]
     Indication: PAIN
  7. FIORICET [Concomitant]
     Indication: TENSION HEADACHE
  8. B 12 [Concomitant]
     Indication: VITAMIN SUPPLEMENTATION
     Route: 050
  9. UNKNOWN STEROID [Concomitant]
     Indication: PAIN
     Dosage: EVERY 10-12 WKS
     Route: 008

REACTIONS (1)
  - Blood testosterone decreased [Not Recovered/Not Resolved]
